FAERS Safety Report 24125739 (Version 3)
Quarter: 2024Q3

REPORT INFORMATION
  Report Type: Spontaneous
  Country: US (occurrence: US)
  Receive Date: 20240723
  Receipt Date: 20240821
  Transmission Date: 20241017
  Serious: Yes (Other)
  Sender: PFIZER
  Company Number: US-PFIZER INC-202400219779

PATIENT
  Age: 60 Year
  Sex: Female
  Weight: 56.7 kg

DRUGS (5)
  1. PRISTIQ EXTENDED-RELEASE [Suspect]
     Active Substance: DESVENLAFAXINE SUCCINATE
     Indication: Adjustment disorder with depressed mood
     Dosage: ONE 50MG ONCE A DAY ORAL
     Route: 048
     Dates: start: 20240618
  2. LEXAPRO [Suspect]
     Active Substance: ESCITALOPRAM OXALATE
     Indication: Adjustment disorder with depressed mood
     Dosage: 10MG ONCE DAY ORAL
     Route: 048
     Dates: start: 2021
  3. LEXAPRO [Suspect]
     Active Substance: ESCITALOPRAM OXALATE
     Dosage: 5MG ONCE A DAY ORAL FOR THOSE TWO WEEKS
     Route: 048
     Dates: start: 20240618, end: 20240702
  4. BUPROPION [Suspect]
     Active Substance: BUPROPION
     Indication: Depression
     Dosage: ONE PILL OF 400MG
     Dates: start: 2020
  5. BUPROPION [Suspect]
     Active Substance: BUPROPION
     Dosage: FOUR 100MG ORAL FOUR TIMES A DAY AND AT LEAST 2 HOURS APART

REACTIONS (4)
  - Crohn^s disease [Unknown]
  - Drug ineffective [Unknown]
  - Dyspepsia [Not Recovered/Not Resolved]
  - Product residue present [Not Recovered/Not Resolved]

NARRATIVE: CASE EVENT DATE: 20240101
